FAERS Safety Report 19073402 (Version 1)
Quarter: 2021Q1

REPORT INFORMATION
  Report Type: Spontaneous
  Country: US (occurrence: US)
  Receive Date: 20210330
  Receipt Date: 20210330
  Transmission Date: 20210420
  Serious: No
  Sender: FDA-Public Use
  Company Number: US-TEVA-2021-US-1894875

PATIENT
  Age: 6 Year
  Sex: Male

DRUGS (1)
  1. CEPHALEXIN. [Suspect]
     Active Substance: CEPHALEXIN
     Indication: PRODUCT USED FOR UNKNOWN INDICATION
     Dosage: 500 MILLIGRAM DAILY; CRUSHING IT AND PUTTING IT IN FOOD TO ADMINISTER THE MEDICATION
     Route: 048
     Dates: start: 202103

REACTIONS (4)
  - Wrong technique in product usage process [Unknown]
  - Sneezing [Not Recovered/Not Resolved]
  - Documented hypersensitivity to administered product [Unknown]
  - Nasal congestion [Not Recovered/Not Resolved]

NARRATIVE: CASE EVENT DATE: 202103
